FAERS Safety Report 6819983-5 (Version None)
Quarter: 2010Q3

REPORT INFORMATION
  Report Type: 
  Country: None (occurrence: None)
  Receive Date: 20100707
  Receipt Date: 20100701
  Transmission Date: 20110219
  Serious: Yes (Hospitalization)
  Sender: FDA-Public Use
  Company Number: US-SANOFI-AVENTIS-2010SA038442

PATIENT
  Age: 71 Year
  Sex: Male
  Weight: 89 kg

DRUGS (7)
  1. MULTAQ [Suspect]
     Indication: ATRIAL FIBRILLATION
     Route: 048
     Dates: start: 20100510, end: 20100628
  2. LASIX [Concomitant]
  3. PANTOPRAZOLE [Concomitant]
  4. ZANTAC [Concomitant]
  5. SIMVASTATIN [Concomitant]
  6. NEURONTIN [Concomitant]
  7. WARFARIN [Concomitant]
     Dosage: ADJUSTING SCALE

REACTIONS (1)
  - CARDIAC FAILURE ACUTE [None]
